FAERS Safety Report 4349930-X (Version None)
Quarter: 2004Q2

REPORT INFORMATION
  Report Type: 
  Country: None (occurrence: None)
  Receive Date: 20040426
  Receipt Date: 20040415
  Transmission Date: 20050107
  Serious: Yes (Other)
  Sender: FDA-Public Use
  Company Number: 2004194175GB

PATIENT
  Age: 86 Year
  Sex: Male
  Weight: 82.6 kg

DRUGS (3)
  1. CABERGOLINE [Suspect]
     Indication: DEPRESSION
     Dosage: 0.5MG/DAY, ORAL
     Route: 048
  2. MADOPAR (BENSERAZIDE HYDROCHLORIDE) [Concomitant]
  3. SELEGELINE HYDROCHLORIDE [Concomitant]

REACTIONS (1)
  - DEPRESSION [None]
